FAERS Safety Report 9603058 (Version 1)
Quarter: 2013Q4

REPORT INFORMATION
  Report Type: Spontaneous
  Country: RU (occurrence: RU)
  Receive Date: 20131007
  Receipt Date: 20131007
  Transmission Date: 20140711
  Serious: Yes (Other)
  Sender: FDA-Public Use
  Company Number: RU-SA-2013SA095803

PATIENT
  Age: 57 Year
  Sex: Female

DRUGS (5)
  1. PLAVIX [Suspect]
     Indication: PRODUCT USED FOR UNKNOWN INDICATION
     Route: 048
  2. ACECARDOL [Concomitant]
  3. PECTROL [Concomitant]
  4. VEROSHPIRON [Concomitant]
  5. CONCOR [Concomitant]

REACTIONS (1)
  - Asphyxia [Recovered/Resolved]
